FAERS Safety Report 8591003-4 (Version None)
Quarter: 2012Q3

REPORT INFORMATION
  Report Type: 
  Country: None (occurrence: None)
  Receive Date: 20120813
  Receipt Date: 20120809
  Transmission Date: 20120928
  Serious: Yes (Hospitalization)
  Sender: FDA-Public Use
  Company Number: CO-BIOMARINP-002827

PATIENT
  Age: 18 Year
  Sex: Female

DRUGS (1)
  1. NAGLAZYME [Suspect]
     Indication: MUCOPOLYSACCHARIDOSIS VI
     Dates: start: 20100930

REACTIONS (4)
  - INTRACRANIAL PRESSURE INCREASED [None]
  - DIZZINESS [None]
  - HEADACHE [None]
  - ENCEPHALOCELE [None]
